FAERS Safety Report 6676687-X (Version None)
Quarter: 2010Q1

REPORT INFORMATION
  Report Type: 
  Country: None (occurrence: None)
  Receive Date: 20100331
  Receipt Date: 20090803
  Transmission Date: 20100710
  Serious: Yes (Death)
  Sender: FDA-Public Use
  Company Number: 2008016228

PATIENT
  Age: 68 Year
  Sex: Female
  Weight: 68 kg

DRUGS (7)
  1. SUTENT [Suspect]
     Indication: METASTATIC RENAL CELL CARCINOMA
     Dosage: 50 MG, 1X/DAY
  2. ALL OTHER THERAPEUTIC PRODUCTS [Concomitant]
  3. OXYCODONE HYDROCHLORIDE [Concomitant]
  4. OXYCONTIN [Concomitant]
  5. DURAGESIC-100 [Concomitant]
  6. SENOKOT [Concomitant]
  7. NORTRIPTYLINE HCL [Concomitant]

REACTIONS (12)
  - BONE PAIN [None]
  - DEHYDRATION [None]
  - DISEASE PROGRESSION [None]
  - DRUG INEFFECTIVE [None]
  - GENITAL LESION [None]
  - MALAISE [None]
  - RASH MACULAR [None]
  - RECTAL LESION [None]
  - RENAL CELL CARCINOMA [None]
  - SKIN LESION [None]
  - STOMATITIS [None]
  - VOMITING [None]
